FAERS Safety Report 10144630 (Version 2)
Quarter: 2014Q2

REPORT INFORMATION
  Report Type: Spontaneous
  Country: US (occurrence: US)
  Receive Date: 20140430
  Receipt Date: 20140523
  Transmission Date: 20141212
  Serious: No
  Sender: FDA-Public Use
  Company Number: US-009507513-1404USA015663

PATIENT
  Sex: Male

DRUGS (2)
  1. PEGINTRON [Suspect]
     Indication: HEPATITIS C
     Dosage: 0.5 DF, QW
     Dates: start: 20070105, end: 20080208
  2. REBETOL [Suspect]
     Indication: HEPATITIS C
     Dosage: 600 MG, BID
     Route: 048
     Dates: start: 20070105, end: 20080208

REACTIONS (5)
  - Hepatitis C [Unknown]
  - Mental status changes [Unknown]
  - Aggression [Unknown]
  - Anger [Unknown]
  - Memory impairment [Unknown]
